FAERS Safety Report 19043886 (Version 1)
Quarter: 2021Q1

REPORT INFORMATION
  Report Type: Spontaneous
  Country: KR (occurrence: KR)
  Receive Date: 20210322
  Receipt Date: 20210322
  Transmission Date: 20210420
  Serious: Yes (Other)
  Sender: FDA-Public Use
  Company Number: KR-BAUSCH-BL-2021-008356

PATIENT
  Age: 19 Month
  Sex: Male

DRUGS (8)
  1. PREDNISOLONE. [Suspect]
     Active Substance: PREDNISOLONE
     Dosage: 0.5 MG/KG/DAY
     Route: 065
  2. EPINEPHRINE. [Concomitant]
     Active Substance: EPINEPHRINE
     Indication: PARAINFLUENZAE VIRUS INFECTION
  3. IMMUNOGLOBULINS [Concomitant]
     Indication: PRODUCT USED FOR UNKNOWN INDICATION
     Route: 042
  4. VALGANCICLOVIR. [Concomitant]
     Active Substance: VALGANCICLOVIR
     Indication: CYTOMEGALOVIRUS CHORIORETINITIS
  5. DEXAMETHASONE. [Suspect]
     Active Substance: DEXAMETHASONE
     Indication: PARAINFLUENZAE VIRUS INFECTION
     Route: 042
  6. DEXAMETHASONE. [Suspect]
     Active Substance: DEXAMETHASONE
     Route: 042
  7. PREDNISOLONE. [Suspect]
     Active Substance: PREDNISOLONE
     Indication: ECZEMA
     Dosage: SINCE THE AGE OF 5 MONTHS; LESS THAN 0.5 MG/KG/DAY
     Route: 065
  8. GANCICLOVIR. [Concomitant]
     Active Substance: GANCICLOVIR
     Indication: CYTOMEGALOVIRUS CHORIORETINITIS
     Dosage: AT THE AGE OF 8 MONTHS
     Route: 042

REACTIONS (2)
  - Tracheobronchitis [Unknown]
  - Aspergillus infection [Unknown]
